FAERS Safety Report 25470311 (Version 2)
Quarter: 2025Q2

REPORT INFORMATION
  Report Type: Spontaneous
  Country: JP (occurrence: JP)
  Receive Date: 20250623
  Receipt Date: 20250627
  Transmission Date: 20250717
  Serious: Yes (Death, Hospitalization)
  Sender: MERCK SHARP & DOHME LLC
  Company Number: JP-009507513-2296970

PATIENT
  Age: 69 Year
  Sex: Female
  Weight: 46 kg

DRUGS (1)
  1. KEYTRUDA [Suspect]
     Active Substance: PEMBROLIZUMAB
     Indication: Non-small cell lung cancer recurrent
     Route: 041
     Dates: start: 20250304, end: 20250416

REACTIONS (5)
  - Altered state of consciousness [Fatal]
  - Movement disorder [Fatal]
  - Hyponatraemia [Fatal]
  - Pyrexia [Fatal]
  - Dyskinesia [Fatal]

NARRATIVE: CASE EVENT DATE: 20250601
